FAERS Safety Report 6682475-0 (Version None)
Quarter: 2010Q2

REPORT INFORMATION
  Report Type: 
  Country: None (occurrence: None)
  Receive Date: 20100415
  Receipt Date: 20100402
  Transmission Date: 20101027
  Serious: Yes (Other)
  Sender: FDA-Public Use
  Company Number: PHHY2010JP20956

PATIENT
  Age: 75 Year
  Sex: Male

DRUGS (3)
  1. ZOMETA [Suspect]
     Indication: METASTASES TO BONE
     Dosage: UNK
     Route: 042
  2. ESTRACYT [Concomitant]
     Dosage: 4 DF, UNK
     Route: 048
     Dates: start: 20091208
  3. ZOLADEX [Concomitant]
     Dosage: 10.8 MG, UNK
     Route: 058

REACTIONS (1)
  - OSTEONECROSIS [None]
